FAERS Safety Report 13667586 (Version 1)
Quarter: 2017Q2

REPORT INFORMATION
  Report Type: Spontaneous
  Country: US (occurrence: US)
  Receive Date: 20170620
  Receipt Date: 20170620
  Transmission Date: 20170830
  Serious: No
  Sender: FDA-Public Use
  Company Number: US-TEVA-712090ACC

PATIENT
  Age: 75 Year
  Sex: Male

DRUGS (4)
  1. FISH OIL [Concomitant]
     Active Substance: FISH OIL
  2. RISPERIDONE. [Suspect]
     Active Substance: RISPERIDONE
  3. MULTIVITAMIN [Concomitant]
     Active Substance: VITAMINS
  4. EXELON PATCH [Concomitant]
     Active Substance: RIVASTIGMINE

REACTIONS (7)
  - Tremor [Recovered/Resolved]
  - Hyperhidrosis [Recovered/Resolved]
  - Sedation [Recovered/Resolved]
  - Balance disorder [Recovered/Resolved]
  - Motor dysfunction [Recovered/Resolved]
  - Agitation [Unknown]
  - Gait disturbance [Recovered/Resolved]

NARRATIVE: CASE EVENT DATE: 20170313
